FAERS Safety Report 6555752-1 (Version None)
Quarter: 2010Q1

REPORT INFORMATION
  Report Type: 
  Country: None (occurrence: None)
  Receive Date: 20100128
  Receipt Date: 20100120
  Transmission Date: 20100710
  Serious: Yes (Death, Life-Threatening, Other)
  Sender: FDA-Public Use
  Company Number: CH-WYE-G05383110

PATIENT
  Age: 43 Year
  Sex: Female

DRUGS (5)
  1. EFFEXOR XR [Suspect]
     Indication: DEPRESSION
     Route: 048
     Dates: start: 20081216, end: 20090126
  2. REYATAZ [Concomitant]
     Indication: HIV INFECTION
     Dosage: 300 (UNIT UNSPECIFIED), FREQUENCY UNKNOWN
     Route: 048
     Dates: start: 20081202, end: 20090126
  3. NORVIR [Concomitant]
     Indication: HIV INFECTION
     Dosage: 100 (UNIT UNSPECIFIED), FREQUENCY UNKNOWN
     Route: 048
     Dates: start: 20081202, end: 20090126
  4. TEMESTA [Concomitant]
     Indication: TENSION
     Dosage: 2 (UNIT UNSPECIFIED), FREQUENCY UNKNOWN
     Route: 048
     Dates: start: 20090121, end: 20090126
  5. TRUVADA [Concomitant]
     Indication: HIV INFECTION
     Dosage: 1 (UNIT UNSPECIFIED), FREQUENCY UNKNOWN
     Route: 048
     Dates: start: 20081202, end: 20090126

REACTIONS (4)
  - ANTIDEPRESSANT DRUG LEVEL ABOVE THERAPEUTIC [None]
  - COMPLETED SUICIDE [None]
  - SEPTIC SHOCK [None]
  - STREPTOCOCCAL INFECTION [None]
